FAERS Safety Report 20444243 (Version 2)
Quarter: 2022Q1

REPORT INFORMATION
  Report Type: Spontaneous
  Country: US (occurrence: US)
  Receive Date: 20220208
  Receipt Date: 20220307
  Transmission Date: 20220424
  Serious: Yes (Other)
  Sender: FDA-Public Use
  Company Number: US-SA-SAC20220204000351

PATIENT
  Age: 34 Year
  Sex: Female

DRUGS (1)
  1. AUBAGIO [Suspect]
     Active Substance: TERIFLUNOMIDE
     Indication: Relapsing multiple sclerosis
     Dosage: 14 MG, QD
     Route: 048
     Dates: start: 20210918, end: 20220215

REACTIONS (9)
  - Neuropathy peripheral [Recovering/Resolving]
  - Sensory disturbance [Not Recovered/Not Resolved]
  - Neuralgia [Recovering/Resolving]
  - Anal incontinence [Unknown]
  - Vaginal discharge [Unknown]
  - Alopecia [Not Recovered/Not Resolved]
  - Condition aggravated [Not Recovered/Not Resolved]
  - Paraesthesia [Not Recovered/Not Resolved]
  - Unevaluable event [Unknown]

NARRATIVE: CASE EVENT DATE: 20211201
